FAERS Safety Report 7310329-5 (Version None)
Quarter: 2011Q1

REPORT INFORMATION
  Report Type: 
  Country: None (occurrence: None)
  Receive Date: 20110224
  Receipt Date: 20101207
  Transmission Date: 20110831
  Serious: Yes (Hospitalization)
  Sender: FDA-Public Use
  Company Number: US-BAYER-200941896GPV

PATIENT
  Sex: Male
  Weight: 51 kg

DRUGS (18)
  1. GARDENAL [Concomitant]
     Dates: start: 20050101
  2. XANAX [Interacting]
     Indication: DEPRESSION
     Dates: start: 20091202
  3. NEURONTIN [Interacting]
     Indication: HEADACHE
     Dosage: 300 MG, QD
     Dates: start: 20091114, end: 20100315
  4. STILNOX [Interacting]
     Indication: PROPHYLAXIS
     Dosage: UNK
     Dates: start: 20091202, end: 20091223
  5. PROPOFAN [CAFF,CARBASAL CA+,CHLORPHENAM MAL,DEXTROPROPOXYPH,PARACET] [Concomitant]
     Indication: PAIN PROPHYLAXIS
     Dosage: UNK
     Dates: start: 20091027
  6. PROPOFAN [CAFF,CARBASAL CA+,CHLORPHENAM MAL,DEXTROPROPOXYPH,PARACET] [Concomitant]
     Dates: start: 20091110, end: 20091113
  7. ACETAMINOPHEN AND TRAMADOL HCL [Concomitant]
     Indication: HEADACHE
     Dates: start: 20090801, end: 20091027
  8. EFFEXOR [Concomitant]
     Indication: DEPRESSION
     Dates: start: 20091023
  9. TRAMADOL [Interacting]
     Indication: HEADACHE
     Dates: start: 20091114, end: 20091201
  10. OXYNORM [Interacting]
     Indication: PAIN
     Dosage: UNK
     Dates: start: 20091202, end: 20091221
  11. GARDENAL [Concomitant]
     Indication: EPILEPSY
     Dosage: UNK
     Dates: start: 19990101
  12. CLARITIN [Concomitant]
     Indication: HEADACHE
     Dates: start: 20000101
  13. PARACETAMOL [Concomitant]
     Indication: PAIN
     Dates: start: 20090801, end: 20091027
  14. EQUANIL [Concomitant]
     Indication: HEADACHE
     Dates: start: 20091202
  15. SORAFENIB (RAF KINASE INHIBITOR) [Suspect]
     Indication: HEPATIC NEOPLASM MALIGNANT
     Dosage: 400 MG, QD
     Route: 048
     Dates: start: 20091021, end: 20100407
  16. TRAMADOL HCL [Interacting]
     Indication: PAIN
     Dosage: UNK
     Dates: start: 20091201, end: 20091221
  17. ACTIFED [Concomitant]
     Indication: RHINITIS ALLERGIC
     Dosage: UNK UNK, PRN
     Dates: start: 20071010, end: 20091027
  18. OMEPRAZOLE [Concomitant]
     Indication: PAIN PROPHYLAXIS
     Dates: start: 20090801

REACTIONS (2)
  - MALNUTRITION [None]
  - CONFUSIONAL STATE [None]
